FAERS Safety Report 21353789 (Version 1)
Quarter: 2022Q3

REPORT INFORMATION
  Report Type: Spontaneous
  Country: US (occurrence: US)
  Receive Date: 20220920
  Receipt Date: 20220920
  Transmission Date: 20221026
  Serious: Yes (Other)
  Sender: FDA-Public Use
  Company Number: US-ORGANON-O2209USA001133

PATIENT
  Sex: Female

DRUGS (3)
  1. COZAAR [Suspect]
     Active Substance: LOSARTAN POTASSIUM
     Dosage: UNK
     Route: 048
  2. AMLODIPINE [Suspect]
     Active Substance: AMLODIPINE BESYLATE
     Dosage: UNK
  3. ATORVASTATIN [Suspect]
     Active Substance: ATORVASTATIN
     Dosage: UNK

REACTIONS (11)
  - Choking [Unknown]
  - Alopecia [Unknown]
  - Cardiac disorder [Unknown]
  - Throat tightness [Unknown]
  - Muscle discomfort [Unknown]
  - Illness [Unknown]
  - Hypersensitivity [Unknown]
  - Muscle spasms [Unknown]
  - Somnolence [Unknown]
  - Rash [Unknown]
  - Urticaria [Unknown]
